FAERS Safety Report 5281953-9 (Version None)
Quarter: 2007Q1

REPORT INFORMATION
  Report Type: 
  Country: None (occurrence: None)
  Receive Date: 20070330
  Receipt Date: 20070321
  Transmission Date: 20070707
  Serious: Yes (Death, Hospitalization)
  Sender: FDA-Public Use
  Company Number: GR-SANOFI-SYNTHELABO-A01200703005

PATIENT
  Age: 76 Year
  Sex: Male

DRUGS (1)
  1. ISCOVER [Suspect]
     Indication: PROPHYLAXIS
     Dosage: UNK
     Route: 048
     Dates: start: 20060401

REACTIONS (2)
  - HAEMATOCRIT DECREASED [None]
  - MYELODYSPLASTIC SYNDROME [None]
